APPROVED DRUG PRODUCT: INDOMETHACIN
Active Ingredient: INDOMETHACIN
Strength: 75MG
Dosage Form/Route: CAPSULE, EXTENDED RELEASE;ORAL
Application: A202139 | Product #001
Applicant: MYLAN PHARMACEUTICALS INC
Approved: Mar 20, 2014 | RLD: No | RS: No | Type: DISCN